FAERS Safety Report 4731738-4 (Version None)
Quarter: 2005Q3

REPORT INFORMATION
  Report Type: 
  Country: None (occurrence: None)
  Receive Date: 20050802
  Receipt Date: 20050725
  Transmission Date: 20060218
  Serious: Yes (Hospitalization)
  Sender: FDA-Public Use
  Company Number: PHNR2005AU01172

PATIENT
  Age: 30 Year
  Sex: Male

DRUGS (4)
  1. CLOZARIL [Suspect]
     Indication: SCHIZOPHRENIA
     Dosage: 550 MG, QD
     Route: 048
     Dates: start: 20021206, end: 20040727
  2. SOLIAN [Suspect]
     Indication: SCHIZOPHRENIA
     Dosage: 300 MG, QD
     Route: 048
     Dates: start: 20040717, end: 20040727
  3. EPILIM [Concomitant]
     Dosage: 600 MG, QD
     Route: 048
     Dates: start: 20040602
  4. ANAFRANIL [Concomitant]
     Dosage: 100 MG, QD
     Dates: start: 20040211

REACTIONS (11)
  - ATRIAL FLUTTER [None]
  - BLOOD CREATINE INCREASED [None]
  - HEADACHE [None]
  - HYPERHIDROSIS [None]
  - INCONTINENCE [None]
  - JOINT STIFFNESS [None]
  - MYOCLONUS [None]
  - NEUROLEPTIC MALIGNANT SYNDROME [None]
  - PYREXIA [None]
  - RASH [None]
  - TREMOR [None]
